FAERS Safety Report 16568524 (Version 1)
Quarter: 2019Q3

REPORT INFORMATION
  Report Type: Spontaneous
  Country: FR (occurrence: FR)
  Receive Date: 20190712
  Receipt Date: 20190712
  Transmission Date: 20191004
  Serious: Yes (Other)
  Sender: FDA-Public Use
  Company Number: PHHY2019FR159530

PATIENT
  Age: 55 Year
  Sex: Male

DRUGS (1)
  1. CILOXADEX [Suspect]
     Active Substance: CIPROFLOXACIN HYDROCHLORIDE\DEXAMETHASONE
     Indication: OTITIS EXTERNA
     Dosage: 8 GTT, QD
     Route: 001
     Dates: start: 20190412, end: 20190413

REACTIONS (2)
  - Pain in extremity [Recovering/Resolving]
  - Musculoskeletal disorder [Recovering/Resolving]

NARRATIVE: CASE EVENT DATE: 20190413
